FAERS Safety Report 5366699-0 (Version None)
Quarter: 2007Q2

REPORT INFORMATION
  Report Type: 
  Country: None (occurrence: None)
  Receive Date: 20070622
  Receipt Date: 20060425
  Transmission Date: 20071010
  Serious: No
  Sender: FDA-Public Use
  Company Number: US-ASTRAZENECA-2006UW07357

PATIENT
  Age: 71 Year
  Sex: Male
  Weight: 100.7 kg

DRUGS (5)
  1. RHINOCORT [Suspect]
     Indication: COUGH
     Route: 045
     Dates: start: 20060301
  2. DOXAZOSIN MESYLATE [Concomitant]
  3. LOVASTATIN [Concomitant]
  4. ASPIRIN [Concomitant]
  5. ALEVE [Concomitant]
     Route: 048

REACTIONS (1)
  - BLOOD PRESSURE INCREASED [None]
